FAERS Safety Report 16050193 (Version 1)
Quarter: 2019Q1

REPORT INFORMATION
  Report Type: Spontaneous
  Country: US (occurrence: US)
  Receive Date: 20190308
  Receipt Date: 20190308
  Transmission Date: 20190418
  Serious: No
  Sender: FDA-Public Use
  Company Number: US-JNJFOC-20140615978

PATIENT
  Age: 66 Year
  Sex: Male
  Weight: 81.65 kg

DRUGS (4)
  1. MENS ROGAINE [Suspect]
     Active Substance: MINOXIDIL
     Route: 061
  2. MENS ROGAINE [Suspect]
     Active Substance: MINOXIDIL
     Indication: HAIR GROWTH ABNORMAL
     Dosage: DOSAGE: AS RECOMMENDED
     Route: 061
     Dates: end: 20140619
  3. PAXIL [Concomitant]
     Active Substance: PAROXETINE HYDROCHLORIDE
     Indication: ANXIETY
     Route: 065
  4. GLYBURIDE. [Concomitant]
     Active Substance: GLYBURIDE
     Indication: DIABETES MELLITUS
     Route: 065

REACTIONS (1)
  - Headache [Recovered/Resolved]
